FAERS Safety Report 10351184 (Version 2)
Quarter: 2014Q3

REPORT INFORMATION
  Report Type: Spontaneous
  Country: US (occurrence: US)
  Receive Date: 20140730
  Receipt Date: 20140917
  Transmission Date: 20150326
  Serious: Yes (Other)
  Sender: FDA-Public Use
  Company Number: PHEH2014US015012

PATIENT
  Age: 45 Year
  Sex: Female
  Weight: 63 kg

DRUGS (4)
  1. VESICARE [Concomitant]
     Active Substance: SOLIFENACIN SUCCINATE
     Indication: HYPERTONIC BLADDER
     Dosage: 5 MG, UNK
     Route: 048
     Dates: start: 20101019, end: 20120315
  2. GILENYA [Suspect]
     Active Substance: FINGOLIMOD HYDROCHLORIDE
     Indication: MULTIPLE SCLEROSIS
     Dosage: 0.5 MG, QD
     Route: 048
     Dates: start: 20110215, end: 20110218
  3. MULTI-VIT [Concomitant]
     Active Substance: VITAMINS
     Dates: start: 20101020
  4. KARIVA [Concomitant]
     Active Substance: DESOGESTREL\ETHINYL ESTRADIOL
     Route: 048
     Dates: start: 20101018

REACTIONS (5)
  - Nausea [Unknown]
  - Vomiting [Unknown]
  - Vertigo [Recovered/Resolved]
  - Dizziness [Unknown]
  - Deafness [Recovered/Resolved]

NARRATIVE: CASE EVENT DATE: 20110218
